FAERS Safety Report 6357843-7 (Version None)
Quarter: 2009Q3

REPORT INFORMATION
  Report Type: 
  Country: None (occurrence: None)
  Receive Date: 20090916
  Receipt Date: 20090904
  Transmission Date: 20100115
  Serious: Yes (Other)
  Sender: FDA-Public Use
  Company Number: PHHY2009JP34234

PATIENT
  Age: 68 Year
  Sex: Male

DRUGS (2)
  1. VOLTAREN [Suspect]
     Indication: ANALGESIA
     Dosage: 75MG PER DAY
     Route: 048
     Dates: start: 20090727, end: 20090813
  2. VOLTAREN [Suspect]
     Dosage: 50MG PER DAY
     Route: 054
     Dates: start: 20090727, end: 20090813

REACTIONS (2)
  - OVERDOSE [None]
  - SURGERY [None]
